FAERS Safety Report 24145302 (Version 10)
Quarter: 2025Q3

REPORT INFORMATION
  Report Type: Spontaneous
  Country: EU (occurrence: EU)
  Receive Date: 20240729
  Receipt Date: 20250723
  Transmission Date: 20251020
  Serious: Yes (Life-Threatening, Hospitalization, Other)
  Sender: TAKEDA
  Company Number: EU-TAKEDA-2024TUS073931

PATIENT
  Age: 50 Year
  Sex: Female

DRUGS (3)
  1. FEIBA NF [Suspect]
     Active Substance: ANTI-INHIBITOR COAGULANT COMPLEX
     Indication: Acquired haemophilia
  2. FEIBA NF [Suspect]
     Active Substance: ANTI-INHIBITOR COAGULANT COMPLEX
  3. NOVOSEVEN [Suspect]
     Active Substance: COAGULATION FACTOR VIIA RECOMBINANT HUMAN
     Indication: Product used for unknown indication

REACTIONS (14)
  - Cerebrovascular accident [Unknown]
  - Haemorrhage [Unknown]
  - Haemorrhagic diathesis [Unknown]
  - Pharyngeal haemorrhage [Unknown]
  - Haemarthrosis [Unknown]
  - Seizure [Recovered/Resolved]
  - Device related sepsis [Unknown]
  - Somnolence [Recovered/Resolved]
  - Feeling cold [Recovered/Resolved]
  - Asthenia [Recovered/Resolved]
  - Myalgia [Recovered/Resolved]
  - Speech disorder [Recovered/Resolved]
  - Joint effusion [Unknown]
  - Pyrexia [Recovered/Resolved]

NARRATIVE: CASE EVENT DATE: 20250608
